FAERS Safety Report 6795387-9 (Version None)
Quarter: 2010Q2

REPORT INFORMATION
  Report Type: 
  Country: None (occurrence: None)
  Receive Date: 20100625
  Receipt Date: 20100622
  Transmission Date: 20101027
  Serious: Yes (Death)
  Sender: FDA-Public Use
  Company Number: JP-JNJFOC-20100601466

PATIENT
  Age: 48 Year
  Sex: Male

DRUGS (20)
  1. DUROTEP MT PATCH [Suspect]
     Indication: ARTHRALGIA
     Route: 062
  2. DUROTEP MT PATCH [Suspect]
     Route: 062
  3. DUROTEP MT PATCH [Suspect]
     Indication: BACK PAIN
     Route: 062
  4. DUROTEP MT PATCH [Suspect]
     Route: 062
  5. DUROTEP MT PATCH [Suspect]
     Indication: SCLERODERMA
     Route: 062
  6. DUROTEP MT PATCH [Suspect]
     Route: 062
  7. CODEINE SULFATE [Suspect]
     Indication: SCLERODERMA
     Route: 048
  8. LAXATIVES [Concomitant]
  9. PENTAZOCINE LACTATE [Concomitant]
     Indication: SCLERODERMA
     Route: 065
  10. PENTAZOCINE LACTATE [Concomitant]
     Route: 065
  11. PENTAZOCINE LACTATE [Concomitant]
     Route: 065
  12. PENTAZOCINE LACTATE [Concomitant]
     Route: 065
  13. PENTAZOCINE LACTATE [Concomitant]
     Route: 065
  14. PENTAZOCINE LACTATE [Concomitant]
     Route: 065
  15. PENTAZOCINE LACTATE [Concomitant]
     Route: 065
  16. PENTAZOCINE LACTATE [Concomitant]
     Route: 065
  17. PENTAZOCINE LACTATE [Concomitant]
     Route: 065
  18. PREDONINE [Concomitant]
     Route: 065
  19. PARIET [Concomitant]
     Route: 048
  20. THYRADIN [Concomitant]
     Route: 048

REACTIONS (3)
  - DEATH [None]
  - MYOCARDIAL INFARCTION [None]
  - OVERDOSE [None]
